FAERS Safety Report 4766851-9 (Version None)
Quarter: 2005Q3

REPORT INFORMATION
  Report Type: 
  Country: None (occurrence: None)
  Receive Date: 20050909
  Receipt Date: 20050902
  Transmission Date: 20060218
  Serious: No
  Sender: FDA-Public Use
  Company Number: LNL-100132-NL

PATIENT
  Age: 42 Year
  Sex: Male

DRUGS (7)
  1. ROCURONIUM BROMIDE [Suspect]
     Dates: start: 19990325
  2. POLYGELINE [Suspect]
  3. MIDAZOLAM [Suspect]
  4. FENTANYL CITRATE [Suspect]
  5. PROPOFOL [Suspect]
  6. ISOFLURANE [Suspect]
  7. ASPIRIN [Concomitant]

REACTIONS (5)
  - BRADYCARDIA [None]
  - HYPERHIDROSIS [None]
  - PROCEDURAL COMPLICATION [None]
  - PROCEDURAL HYPOTENSION [None]
  - VASODILATATION [None]
